FAERS Safety Report 8474690-0 (Version None)
Quarter: 2012Q2

REPORT INFORMATION
  Report Type: 
  Country: None (occurrence: None)
  Receive Date: 20120628
  Receipt Date: 20120625
  Transmission Date: 20120825
  Serious: Yes (Hospitalization)
  Sender: FDA-Public Use
  Company Number: KR-PFIZER INC-2012141948

PATIENT
  Age: 49 Year
  Sex: Female
  Weight: 49 kg

DRUGS (2)
  1. SUNITINIB MALATE [Suspect]
     Indication: GASTROINTESTINAL STROMAL TUMOUR
     Dosage: 50 MG, 1X/DAY
     Route: 048
     Dates: start: 20110428, end: 20110705
  2. SUNITINIB MALATE [Suspect]
     Dosage: 25 MG, 1X/DAY
     Route: 048
     Dates: start: 20110727, end: 20110828

REACTIONS (1)
  - PERICARDIAL EFFUSION [None]
